FAERS Safety Report 18664673 (Version 1)
Quarter: 2020Q4

REPORT INFORMATION
  Report Type: Report from Study
  Country: EG (occurrence: EG)
  Receive Date: 20201225
  Receipt Date: 20201225
  Transmission Date: 20210114
  Serious: Yes (Other)
  Sender: FDA-Public Use
  Company Number: NVSC2020EG334176

PATIENT
  Age: 31 Year
  Sex: Female

DRUGS (4)
  1. DEPAKINE CHRONO [Concomitant]
     Active Substance: VALPROATE SODIUM
     Indication: PRODUCT USED FOR UNKNOWN INDICATION
     Dosage: 1 DF, BID (7-8 MONTHS AGO, BUT HE COULDN?T REMEMBER EXACT TIME)
     Route: 065
  2. TASIGNA [Suspect]
     Active Substance: NILOTINIB
     Indication: CHRONIC MYELOID LEUKAEMIA
     Dosage: 2 DF, BID (STARTED 7-8 MONTHS AS PER THE REPORTER, BUT HE COULDN?T REMEMBER EXACT TIME)
     Route: 065
  3. TEGRETOL XR [Concomitant]
     Active Substance: CARBAMAZEPINE
     Indication: PRODUCT USED FOR UNKNOWN INDICATION
     Dosage: 1 DF, Q4H (10 YEARS AGO TILL SHE STARTED TASIGNA 7-8 MONTHS AGO)
     Route: 065
  4. GLIVEC [Suspect]
     Active Substance: IMATINIB MESYLATE
     Indication: CHRONIC MYELOID LEUKAEMIA
     Dosage: UNK, (1 AND HALF - 2 YEARS AGO, BUT THE REPORTER COULDN?T REMEMBER EXACT TIME)
     Route: 065

REACTIONS (5)
  - Product availability issue [Unknown]
  - Epilepsy [Recovering/Resolving]
  - Decreased immune responsiveness [Not Recovered/Not Resolved]
  - Diarrhoea [Unknown]
  - Cough [Not Recovered/Not Resolved]

NARRATIVE: CASE EVENT DATE: 2019
